FAERS Safety Report 5217136-8 (Version None)
Quarter: 2007Q1

REPORT INFORMATION
  Report Type: 
  Country: None (occurrence: None)
  Receive Date: 20070124
  Receipt Date: 20070119
  Transmission Date: 20070707
  Serious: Yes (Life-Threatening)
  Sender: FDA-Public Use
  Company Number: FR-GLAXOSMITHKLINE-B0455028A

PATIENT
  Age: 49 Year
  Sex: Female

DRUGS (4)
  1. AUGMENTIN '125' [Suspect]
     Indication: PROPHYLAXIS
     Dosage: 2G SINGLE DOSE
     Route: 042
     Dates: start: 20060816, end: 20060816
  2. DIPRIVAN [Concomitant]
     Route: 042
     Dates: start: 20060816, end: 20060816
  3. ULTIVA [Concomitant]
     Route: 042
     Dates: start: 20060816, end: 20060816
  4. SEVORANE [Concomitant]
     Route: 055
     Dates: start: 20060816, end: 20060816

REACTIONS (2)
  - ANAPHYLACTIC SHOCK [None]
  - ATRIOVENTRICULAR BLOCK [None]
